FAERS Safety Report 20920707 (Version 4)
Quarter: 2023Q1

REPORT INFORMATION
  Report Type: Spontaneous
  Country: US (occurrence: US)
  Receive Date: 20220606
  Receipt Date: 20230125
  Transmission Date: 20230417
  Serious: Yes (Death, Hospitalization, Other)
  Sender: FDA-Public Use
  Company Number: US-PFIZER INC-202200789611

PATIENT
  Age: 94 Year
  Sex: Male

DRUGS (1)
  1. VYNDAMAX [Suspect]
     Active Substance: TAFAMIDIS
     Indication: Amyloidosis
     Dosage: 61 MG, 1X/DAY

REACTIONS (7)
  - Death [Fatal]
  - Gait inability [Unknown]
  - Dysstasia [Unknown]
  - Dyspnoea [Unknown]
  - Off label use [Unknown]
  - Weight decreased [Unknown]
  - Food refusal [Unknown]

NARRATIVE: CASE EVENT DATE: 20230108
